FAERS Safety Report 17489037 (Version 1)
Quarter: 2020Q1

REPORT INFORMATION
  Report Type: Spontaneous
  Country: US (occurrence: US)
  Receive Date: 20200221
  Receipt Date: 20200221
  Transmission Date: 20200409
  Serious: No
  Sender: FDA-Public Use
  Company Number: None

PATIENT
  Age: 8 Year
  Sex: Male

DRUGS (1)
  1. TOBRAMYCIN NEB 300MG/5ML [Suspect]
     Active Substance: TOBRAMYCIN
     Route: 055
     Dates: start: 2020

REACTIONS (2)
  - Infective pulmonary exacerbation of cystic fibrosis [None]
  - Pneumonia [None]

NARRATIVE: CASE EVENT DATE: 20190701
